FAERS Safety Report 4300316-3 (Version None)
Quarter: 2004Q1

REPORT INFORMATION
  Report Type: 
  Country: None (occurrence: None)
  Receive Date: 20040218
  Receipt Date: 20040209
  Transmission Date: 20041129
  Serious: Yes (Life-Threatening, Hospitalization, Other)
  Sender: FDA-Public Use
  Company Number: 2004-02-0519

PATIENT
  Age: 79 Year
  Sex: Male

DRUGS (6)
  1. NITRO-DUR [Suspect]
     Dosage: 9.6MG (24 HR) TRANSDERMA
     Route: 062
  2. LASIX [Concomitant]
  3. LOPRESSOR [Concomitant]
  4. REGLAN [Concomitant]
  5. FLAGYL [Concomitant]
  6. UNASYN [Concomitant]

REACTIONS (2)
  - AORTIC ANEURYSM [None]
  - POSTOPERATIVE INFECTION [None]
